FAERS Safety Report 20045640 (Version 1)
Quarter: 2021Q4

REPORT INFORMATION
  Report Type: Spontaneous
  Country: US (occurrence: US)
  Receive Date: 20211108
  Receipt Date: 20211108
  Transmission Date: 20220303
  Serious: Yes (Other)
  Sender: FDA-Public Use
  Company Number: US-NOVARTISPH-NVSC2021US251575

PATIENT
  Age: 5 Year
  Sex: Female

DRUGS (5)
  1. CARBOPLATIN [Suspect]
     Active Substance: CARBOPLATIN
     Indication: Medulloblastoma
     Dosage: THREE TANDEM CYCLES
     Route: 065
  2. THIOTEPA [Suspect]
     Active Substance: THIOTEPA
     Indication: Medulloblastoma
     Dosage: THREE TANDEM CYCLES
     Route: 065
  3. DIGOXIN [Concomitant]
     Active Substance: DIGOXIN
     Indication: Product used for unknown indication
     Dosage: UNK
     Route: 065
  4. FUROSEMIDE [Concomitant]
     Active Substance: FUROSEMIDE
     Indication: Product used for unknown indication
     Dosage: UNK
     Route: 065
  5. SPIRONOLACTONE [Concomitant]
     Active Substance: SPIRONOLACTONE
     Indication: Product used for unknown indication
     Dosage: UNK
     Route: 065

REACTIONS (3)
  - Pulmonary arterial hypertension [Recovered/Resolved]
  - Product use in unapproved indication [Unknown]
  - Off label use [Unknown]
